FAERS Safety Report 6259355-8 (Version None)
Quarter: 2009Q3

REPORT INFORMATION
  Report Type: 
  Country: None (occurrence: None)
  Receive Date: 20090706
  Receipt Date: 20090625
  Transmission Date: 20100115
  Serious: Yes (Other)
  Sender: FDA-Public Use
  Company Number: SPV1-2009-01334

PATIENT
  Age: 16 Year
  Sex: Male

DRUGS (4)
  1. VYVANSE [Suspect]
     Dosage: 20 MG, 1X/DAY;QD;ORAL; 30 MG, 1X/DAY;QD, ORAL
     Route: 048
     Dates: start: 20090330, end: 20090513
  2. VYVANSE [Suspect]
     Dosage: 20 MG, 1X/DAY;QD;ORAL; 30 MG, 1X/DAY;QD, ORAL
     Route: 048
     Dates: start: 20090514
  3. CLARITIN          /00917501/ (LORATADINE) [Concomitant]
  4. DOXYCYCLINE (DOXYCYCLINE) [Concomitant]

REACTIONS (2)
  - OFF LABEL USE [None]
  - SYNCOPE [None]
